FAERS Safety Report 5587604-8 (Version None)
Quarter: 2008Q1

REPORT INFORMATION
  Report Type: 
  Country: None (occurrence: None)
  Receive Date: 20080110
  Receipt Date: 20071231
  Transmission Date: 20080703
  Serious: Yes (Death)
  Sender: FDA-Public Use
  Company Number: US-MERCK-0801USA00186

PATIENT
  Age: 51 Year
  Sex: Male

DRUGS (9)
  1. VALSARTAN [Suspect]
     Route: 048
  2. PROSCAR [Suspect]
     Route: 048
  3. ASPIRIN AND DIPYRIDAMOLE [Suspect]
     Route: 048
  4. LEVETIRACETAM [Suspect]
     Route: 048
  5. SERTRALINE HYDROCHLORIDE [Suspect]
     Route: 048
  6. [THERAPY UNSPECIFIED] [Suspect]
     Route: 048
  7. FUROSEMIDE [Suspect]
     Route: 048
  8. VYTORIN [Suspect]
     Route: 048
  9. METOLAZONE [Suspect]
     Route: 048

REACTIONS (2)
  - COMPLETED SUICIDE [None]
  - OVERDOSE [None]
